FAERS Safety Report 5293543-2 (Version None)
Quarter: 2007Q2

REPORT INFORMATION
  Report Type: 
  Country: None (occurrence: None)
  Receive Date: 20070411
  Receipt Date: 20070404
  Transmission Date: 20071010
  Serious: Yes (Other)
  Sender: FDA-Public Use
  Company Number: PL-GLAXOSMITHKLINE-B0465753A

PATIENT
  Age: 76 Year
  Sex: Female

DRUGS (1)
  1. ZINACEF [Suspect]
     Indication: UPPER RESPIRATORY TRACT INFECTION
     Route: 030
     Dates: start: 20070222, end: 20070225

REACTIONS (1)
  - DYSPNOEA [None]
